FAERS Safety Report 21381175 (Version 2)
Quarter: 2023Q1

REPORT INFORMATION
  Report Type: Spontaneous
  Country: US (occurrence: US)
  Receive Date: 20220927
  Receipt Date: 20230117
  Transmission Date: 20230418
  Serious: No
  Sender: FDA-Public Use
  Company Number: US-Sprout Pharmaceuticals, Inc.-2022SP000270

PATIENT
  Age: 33 Year
  Sex: Female
  Weight: 45.400 kg

DRUGS (2)
  1. ADDYI [Suspect]
     Active Substance: FLIBANSERIN
     Indication: Libido decreased
     Dosage: ONE TABLET BY MOUTH IN THE EVENING. PERMANENT STOP.
     Route: 048
     Dates: start: 20220917, end: 20220917
  2. ADDERALL [Concomitant]
     Active Substance: AMPHETAMINE ASPARTATE\AMPHETAMINE SULFATE\DEXTROAMPHETAMINE SACCHARATE\DEXTROAMPHETAMINE SULFATE
     Indication: Attention deficit hyperactivity disorder
     Dosage: STARTED ABOUT 1 YEAR AGO
     Route: 048

REACTIONS (23)
  - Confusional state [Recovered/Resolved]
  - Presyncope [Recovered/Resolved]
  - Paraesthesia [Recovered/Resolved]
  - Nightmare [Recovered/Resolved]
  - Headache [Recovered/Resolved]
  - Vomiting [Recovered/Resolved]
  - Tachycardia [Recovered/Resolved]
  - Abdominal discomfort [Recovered/Resolved]
  - Feeling jittery [Recovered/Resolved]
  - Vision blurred [Recovered/Resolved]
  - Depressed mood [Not Recovered/Not Resolved]
  - Irritability [Recovered/Resolved]
  - Movement disorder [Recovered/Resolved]
  - Speech disorder [Recovered/Resolved]
  - Hangover [Recovered/Resolved]
  - Photophobia [Recovered/Resolved]
  - Cognitive disorder [Recovered/Resolved]
  - Disturbance in attention [Recovered/Resolved]
  - Dehydration [Recovered/Resolved]
  - Somnolence [Recovered/Resolved]
  - Nausea [Recovered/Resolved]
  - Anxiety [Not Recovered/Not Resolved]
  - Middle insomnia [Recovered/Resolved]

NARRATIVE: CASE EVENT DATE: 20220917
